FAERS Safety Report 9316346 (Version 2)
Quarter: 2013Q1

REPORT INFORMATION
  Report Type: Spontaneous
  Country: DE (occurrence: None)
  Receive Date: 20121204
  Receipt Date: 20121212
  Transmission Date: 20140127
  Serious: Yes (Hospitalization)
  Sender: FDA-Public Use
  Company Number: ACO_31549_2012

PATIENT
  Age: 48 Year
  Sex: Male

DRUGS (7)
  1. FAMPRIDINE-SR (FAMPRIDINE) TABLET [Suspect]
     Indication: MULTIPLE SCLEROSIS
     Route: 048
     Dates: start: 20120626
  2. BACLOFEN (BACLOFEN) (BACLOFEN) [Concomitant]
  3. CITALOPRAM (CITAPROLAM HYDROCHLORIDE) [Concomitant]
  4. FOLIC ACID (FOLIC ACID) [Concomitant]
  5. PRAMIPEXOLE (PRAMIPEXOLE) [Concomitant]
  6. SIMVASTATIN (SIMVASTATIN) [Concomitant]
  7. SYMPAL (DEXKETOPREFEN) [Concomitant]

REACTIONS (1)
  - Spinal laminectomy [None]
